FAERS Safety Report 7451667-5 (Version None)
Quarter: 2011Q2

REPORT INFORMATION
  Report Type: 
  Country: None (occurrence: None)
  Receive Date: 20110502
  Receipt Date: 20100712
  Transmission Date: 20111010
  Serious: No
  Sender: FDA-Public Use
  Company Number: US-ASTRAZENECA-2010SE32499

PATIENT
  Age: 49 Year
  Sex: Male
  Weight: 77.1 kg

DRUGS (4)
  1. FISH OIL [Concomitant]
     Indication: BLOOD CHOLESTEROL INCREASED
  2. NIACIN [Concomitant]
  3. ASPIRIN [Concomitant]
  4. NEXIUM [Suspect]
     Indication: GASTROOESOPHAGEAL REFLUX DISEASE
     Route: 048
     Dates: start: 20100711

REACTIONS (2)
  - EYE PRURITUS [None]
  - DRY MOUTH [None]
